FAERS Safety Report 6765380-0 (Version None)
Quarter: 2010Q2

REPORT INFORMATION
  Report Type: 
  Country: None (occurrence: None)
  Receive Date: 20100611
  Receipt Date: 20100602
  Transmission Date: 20101027
  Serious: Yes (Other)
  Sender: FDA-Public Use
  Company Number: US-JNJFOC-20100602988

PATIENT
  Age: 20 Year
  Sex: Female

DRUGS (4)
  1. MONISTAT 3 COMBINATION PACK [Suspect]
     Route: 067
  2. MONISTAT 3 COMBINATION PACK [Suspect]
     Indication: DRUG USE FOR UNKNOWN INDICATION
     Dosage: 4% STRENGTH
     Route: 067
  3. MONISTAT 3 COMBINATION PACK [Suspect]
     Route: 061
  4. MONISTAT 3 COMBINATION PACK [Suspect]
     Dosage: 100MG TUBE 2% STRENGTH EXTERNAL CREAM
     Route: 061

REACTIONS (4)
  - ADVERSE EVENT [None]
  - PRODUCT OUTER PACKAGING ISSUE [None]
  - PRODUCT PACKAGING ISSUE [None]
  - PRODUCT TAMPERING [None]
